FAERS Safety Report 25749011 (Version 1)
Quarter: 2025Q3

REPORT INFORMATION
  Report Type: Spontaneous
  Country: GB (occurrence: GB)
  Receive Date: 20250902
  Receipt Date: 20250902
  Transmission Date: 20251020
  Serious: Yes (Other)
  Sender: TEVA
  Company Number: None

PATIENT
  Age: 54 Year
  Sex: Male

DRUGS (1)
  1. TAMSULOSIN [Suspect]
     Active Substance: TAMSULOSIN
     Indication: Product used for unknown indication
     Dosage: DAILY DOSAGE: 400MG DAY MORNING
     Route: 065
     Dates: start: 20250805, end: 20250901

REACTIONS (1)
  - Retrograde ejaculation [Not Recovered/Not Resolved]
